FAERS Safety Report 6342026-7 (Version None)
Quarter: 2009Q3

REPORT INFORMATION
  Report Type: 
  Country: None (occurrence: None)
  Receive Date: 20090904
  Receipt Date: 20090821
  Transmission Date: 20100115
  Serious: Yes (Hospitalization)
  Sender: FDA-Public Use
  Company Number: GB-GENENTECH-289843

PATIENT
  Sex: Female

DRUGS (5)
  1. BEVACIZUMAB [Suspect]
     Indication: BREAST CANCER
     Dosage: 1075 MG, Q3W
     Route: 042
  2. EPIRUBICIN [Suspect]
     Indication: BREAST CANCER
     Dosage: 186 MG, Q3W
     Route: 042
     Dates: start: 20090514
  3. CYCLOPHOSPHAMIDE [Suspect]
     Indication: BREAST CANCER
     Dosage: 960 MG, Q3W
     Route: 042
     Dates: start: 20090514
  4. FLUOROURACIL [Suspect]
     Indication: BREAST CANCER
     Dosage: 950 MG, Q3W
     Route: 042
     Dates: start: 20090514
  5. PARACETAMOL [Concomitant]
     Indication: DRUG USE FOR UNKNOWN INDICATION
     Dosage: UNK
     Dates: start: 20090820

REACTIONS (3)
  - NEUTROPENIC SEPSIS [None]
  - PAIN [None]
  - PYREXIA [None]
